FAERS Safety Report 5157217-0 (Version None)
Quarter: 2006Q4

REPORT INFORMATION
  Report Type: 
  Country: None (occurrence: None)
  Receive Date: 20061127
  Receipt Date: 20061116
  Transmission Date: 20070319
  Serious: Yes (Other)
  Sender: FDA-Public Use
  Company Number: US-JNJFOC-20061104619

PATIENT
  Sex: Male
  Weight: 94.35 kg

DRUGS (5)
  1. FENTANYL TRANSDERMAL SYSTEM [Suspect]
     Dosage: 2X 100UG/HOUR PATCH, 75UG/HOUR PATCH
     Route: 062
  2. FENTANYL TRANSDERMAL SYSTEM [Suspect]
     Route: 062
  3. FENTANYL TRANSDERMAL SYSTEM [Suspect]
     Indication: BACK DISORDER
     Route: 062
  4. PROZAC [Concomitant]
     Indication: DEPRESSION
     Route: 065
  5. LYRICA [Concomitant]
     Indication: NEUROPATHY
     Route: 048

REACTIONS (6)
  - BACK INJURY [None]
  - HAEMORRHAGE INTRACRANIAL [None]
  - HYPERTENSION [None]
  - INCORRECT DRUG ADMINISTRATION DURATION [None]
  - PAIN [None]
  - ROAD TRAFFIC ACCIDENT [None]
